FAERS Safety Report 7465809-9 (Version None)
Quarter: 2011Q2

REPORT INFORMATION
  Report Type: 
  Country: None (occurrence: None)
  Receive Date: 20110509
  Receipt Date: 20100402
  Transmission Date: 20111010
  Serious: No
  Sender: FDA-Public Use
  Company Number: US-ALEXION-A201000389

PATIENT
  Sex: Female
  Weight: 71.3 kg

DRUGS (20)
  1. PREDNISONE [Concomitant]
     Dosage: 20 MG, QD
     Route: 048
  2. ATIVAN [Concomitant]
     Dosage: 1 MG, PRN
     Route: 048
  3. NIFEDIPINE [Concomitant]
     Dosage: 90 MG, BID
     Route: 048
  4. ACYCLOVIR [Suspect]
     Indication: HERPES ZOSTER
     Dosage: UNK
     Dates: start: 20100409, end: 20100401
  5. LASIX [Concomitant]
     Dosage: 40 MG, BID
     Route: 048
  6. MEPRON                             /01181501/ [Concomitant]
     Dosage: 1500, QD
     Route: 048
  7. PROTONIX [Concomitant]
     Dosage: 40 UNK, QD
     Route: 048
  8. CELL CEPT [Concomitant]
     Dosage: 500 MG, TID
     Route: 048
  9. NIFEREX                            /01214501/ [Concomitant]
     Dosage: 150 MG, QD
     Route: 048
  10. MAGNESIUM OXIDE [Concomitant]
     Dosage: UNK
     Route: 048
  11. K-DUR [Concomitant]
     Dosage: 40 MG, BID
     Route: 048
  12. SOLIRIS [Suspect]
     Indication: OFF LABEL USE
     Dosage: 1200 MG, Q2W
     Route: 042
     Dates: start: 20100131, end: 20100405
  13. AMBIEN [Concomitant]
     Dosage: 10 MG, PRN
     Route: 048
  14. POTASSIUM PHOSPHATES [Concomitant]
     Dosage: 250 UNK, QD
     Route: 048
  15. CIPRO [Concomitant]
     Dosage: 500 MG, QD
     Route: 048
  16. METOLAZONE [Concomitant]
     Dosage: 2.5, QD
     Route: 048
  17. SOLIRIS [Suspect]
     Indication: PAROXYSMAL NOCTURNAL HAEMOGLOBINURIA
  18. ASPIRIN [Concomitant]
     Dosage: UNK
     Route: 048
  19. NEURONTIN [Concomitant]
     Dosage: 300 MG, TID
     Route: 048
  20. COREG [Concomitant]
     Dosage: 25, BID
     Route: 048

REACTIONS (2)
  - NAUSEA [None]
  - HERPES ZOSTER [None]
